FAERS Safety Report 21906024 (Version 1)
Quarter: 2023Q1

REPORT INFORMATION
  Report Type: Spontaneous
  Country: JP (occurrence: JP)
  Receive Date: 20230124
  Receipt Date: 20230124
  Transmission Date: 20230418
  Serious: Yes (Hospitalization, Other)
  Sender: FDA-Public Use
  Company Number: JP-SUNPHARMA-2023R1-373184AA

PATIENT
  Age: 72 Year
  Sex: Female

DRUGS (2)
  1. VALACYCLOVIR HYDROCHLORIDE [Suspect]
     Active Substance: VALACYCLOVIR HYDROCHLORIDE
     Indication: Herpes zoster
     Dosage: 3000 MILLIGRAM
     Route: 048
  2. LOXOPROFEN SODIUM [Suspect]
     Active Substance: LOXOPROFEN SODIUM
     Indication: Herpes zoster
     Dosage: UNK
     Route: 065

REACTIONS (2)
  - Acute kidney injury [Recovering/Resolving]
  - Toxic encephalopathy [Recovering/Resolving]
